FAERS Safety Report 4592453-3 (Version None)
Quarter: 2005Q1

REPORT INFORMATION
  Report Type: 
  Country: None (occurrence: None)
  Receive Date: 20050222
  Receipt Date: 20050210
  Transmission Date: 20050727
  Serious: Yes (Hospitalization)
  Sender: FDA-Public Use
  Company Number: RENA-11263

PATIENT
  Age: 61 Year
  Sex: Male
  Weight: 56.7 kg

DRUGS (19)
  1. RENAGEL [Suspect]
     Indication: HYPERPHOSPHATAEMIA
     Dosage: 1 G TID PO
     Route: 048
     Dates: end: 20041221
  2. HALCION [Concomitant]
  3. DIAZEPAM [Concomitant]
  4. PREDNISONE [Concomitant]
  5. ALESION [Concomitant]
  6. PROTECAIN (LEFUTIDINE) [Concomitant]
  7. PURSENNID [Concomitant]
  8. ALLOPURINOL TAB [Concomitant]
  9. RISUMIC [Concomitant]
  10. JUVELA NICOTINATE [Concomitant]
  11. CYANOCOBALAMIN [Concomitant]
  12. URSO 250 [Concomitant]
  13. AZUCURENIN [Concomitant]
  14. MUCOSTA [Concomitant]
  15. LORCAM (LORNOXICAM) [Concomitant]
  16. LEBENIN [Concomitant]
  17. BUFFERIN [Concomitant]
  18. ESPO [Concomitant]
  19. CERCINE [Concomitant]

REACTIONS (5)
  - CONSTIPATION [None]
  - DIALYSIS [None]
  - ENTEROCOLITIS [None]
  - GASTROINTESTINAL PERFORATION [None]
  - RETROPERITONEAL ABSCESS [None]
